FAERS Safety Report 20077381 (Version 1)
Quarter: 2021Q4

REPORT INFORMATION
  Report Type: Spontaneous
  Country: US (occurrence: US)
  Receive Date: 20211116
  Receipt Date: 20211116
  Transmission Date: 20220303
  Serious: Yes (Other)
  Sender: FDA-Public Use
  Company Number: US-BioHaven Pharmaceuticals-2021BHV000728

PATIENT
  Age: 59 Year
  Sex: Female
  Weight: 40.406 kg

DRUGS (3)
  1. NURTEC ODT [Suspect]
     Active Substance: RIMEGEPANT SULFATE
     Indication: Migraine
     Dosage: WHITE ODT
     Route: 048
     Dates: start: 202109
  2. NURTEC ODT [Suspect]
     Active Substance: RIMEGEPANT SULFATE
     Dosage: FOR ACUTE TREATMENT
     Route: 048
     Dates: start: 2020
  3. AIMOVIG [Suspect]
     Active Substance: ERENUMAB-AOOE
     Indication: Product used for unknown indication
     Route: 065

REACTIONS (4)
  - Ileus paralytic [Unknown]
  - Constipation [Not Recovered/Not Resolved]
  - Gastrointestinal sounds abnormal [Unknown]
  - Muscular weakness [Unknown]
